FAERS Safety Report 10103155 (Version 1)
Quarter: 2014Q2

REPORT INFORMATION
  Report Type: Spontaneous
  Country: US (occurrence: US)
  Receive Date: 20140424
  Receipt Date: 20140424
  Transmission Date: 20141212
  Serious: No
  Sender: FDA-Public Use
  Company Number: US-BRISTOL-MYERS SQUIBB COMPANY-20139218

PATIENT
  Age: 86 Year
  Sex: Female

DRUGS (5)
  1. ELIQUIS [Suspect]
     Dosage: 1 DF=5 MG?REDUCED 2.5 MG
  2. LISINOPRIL [Concomitant]
  3. SYNTHROID [Concomitant]
  4. VITAMINS [Concomitant]
  5. FISH OIL [Concomitant]

REACTIONS (1)
  - Head discomfort [Unknown]
